FAERS Safety Report 26176240 (Version 1)
Quarter: 2025Q4

REPORT INFORMATION
  Report Type: Report from Study
  Country: US (occurrence: US)
  Receive Date: 20251218
  Receipt Date: 20251218
  Transmission Date: 20260117
  Serious: Yes (Hospitalization)
  Sender: TAIHO ONCOLOGY INC
  Company Number: US-TAIHOP-2025-013523

PATIENT
  Sex: Male

DRUGS (1)
  1. INQOVI [Suspect]
     Active Substance: CEDAZURIDINE\DECITABINE
     Indication: Chronic myelomonocytic leukaemia
     Dosage: 135 MG (DECITABINE 35 MG AND CEDAZURIDINE 100 MG)?CYCLE UNKNOWN
     Route: 048
     Dates: start: 202411

REACTIONS (2)
  - Splenomegaly [Unknown]
  - Weight decreased [Unknown]
